FAERS Safety Report 6096001-0 (Version None)
Quarter: 2009Q1

REPORT INFORMATION
  Report Type: 
  Country: None (occurrence: None)
  Receive Date: 20090227
  Receipt Date: 20080818
  Transmission Date: 20090719
  Serious: No
  Sender: FDA-Public Use
  Company Number: A0741118A

PATIENT
  Age: 56 Year
  Sex: Male

DRUGS (5)
  1. LAMICTAL [Suspect]
     Indication: BIPOLAR DISORDER
     Dosage: 100MG THREE TIMES PER DAY
     Route: 048
     Dates: start: 20080601, end: 20080728
  2. LITHIUM [Concomitant]
  3. ZYPREXA [Concomitant]
  4. AMBIEN [Concomitant]
  5. DIABETES MEDICATION [Concomitant]
     Route: 048

REACTIONS (1)
  - RASH [None]
